FAERS Safety Report 19706857 (Version 1)
Quarter: 2021Q3

REPORT INFORMATION
  Report Type: Spontaneous
  Country: US (occurrence: US)
  Receive Date: 20210817
  Receipt Date: 20210817
  Transmission Date: 20211014
  Serious: Yes (Other)
  Sender: FDA-Public Use
  Company Number: US-STRIDES ARCOLAB LIMITED-2021SP026434

PATIENT
  Sex: Male

DRUGS (2)
  1. PEG 3350, SODIUM CHLORIDE, SODIUM BICARBONATE, POTASSIUM CHLORIDE [Suspect]
     Active Substance: POLYETHYLENE GLYCOL 3350\POTASSIUM CHLORIDE\SODIUM BICARBONATE\SODIUM CHLORIDE
     Indication: PRODUCT USED FOR UNKNOWN INDICATION
     Dosage: UNK
     Route: 065
     Dates: start: 20210623
  2. PEG 3350, SODIUM CHLORIDE, SODIUM BICARBONATE, POTASSIUM CHLORIDE [Suspect]
     Active Substance: POLYETHYLENE GLYCOL 3350\POTASSIUM CHLORIDE\SODIUM BICARBONATE\SODIUM CHLORIDE
     Dosage: UNK, PART OF A SINGLE 17GM DOSE OF PEG 3350 PWDR ON THE MORNING
     Route: 065
     Dates: start: 20210802

REACTIONS (5)
  - Throat irritation [Not Recovered/Not Resolved]
  - Oropharyngeal blistering [Not Recovered/Not Resolved]
  - Dysgeusia [Not Recovered/Not Resolved]
  - Poor quality product administered [Unknown]
  - Incorrect dose administered [Unknown]

NARRATIVE: CASE EVENT DATE: 20210802
